FAERS Safety Report 16681900 (Version 1)
Quarter: 2019Q3

REPORT INFORMATION
  Report Type: Report from Study
  Country: US (occurrence: US)
  Receive Date: 20190808
  Receipt Date: 20190808
  Transmission Date: 20191004
  Serious: Yes (Hospitalization)
  Sender: FDA-Public Use
  Company Number: US-EISAI MEDICAL RESEARCH-EC-2019-057059

PATIENT
  Age: 64 Year
  Sex: Male

DRUGS (4)
  1. OXYCODONE [Concomitant]
     Active Substance: OXYCODONE
  2. LENVIMA [Suspect]
     Active Substance: LENVATINIB
     Indication: HEPATOCELLULAR CARCINOMA
     Route: 048
     Dates: start: 201905, end: 2019
  3. VITAMIN D2 [Concomitant]
     Active Substance: ERGOCALCIFEROL
  4. LENVIMA [Suspect]
     Active Substance: LENVATINIB
     Route: 048
     Dates: start: 2019, end: 20190801

REACTIONS (6)
  - Arthralgia [Recovering/Resolving]
  - Gait disturbance [Unknown]
  - Arthropod bite [Recovered/Resolved]
  - Fatigue [Unknown]
  - Drug hypersensitivity [Unknown]
  - Blood pressure increased [Unknown]

NARRATIVE: CASE EVENT DATE: 20190520
